FAERS Safety Report 10780949 (Version 1)
Quarter: 2015Q1

REPORT INFORMATION
  Report Type: Spontaneous
  Country: US (occurrence: None)
  Receive Date: 20150209
  Receipt Date: 20150209
  Transmission Date: 20150721
  Serious: Yes (Hospitalization)
  Sender: FDA-Public Use
  Company Number: None

PATIENT
  Age: 92 Year
  Sex: Female

DRUGS (1)
  1. VANCOMYCIN [Suspect]
     Active Substance: VANCOMYCIN
     Indication: CELLULITIS
     Dosage: 3 TID INTRAVENOUS
     Route: 042
     Dates: start: 20150131, end: 20150131

REACTIONS (2)
  - Inappropriate schedule of drug administration [None]
  - Antibiotic level above therapeutic [None]

NARRATIVE: CASE EVENT DATE: 20150131
